FAERS Safety Report 16532212 (Version 1)
Quarter: 2019Q3

REPORT INFORMATION
  Report Type: Report from Study
  Country: None (occurrence: HU)
  Receive Date: 20190705
  Receipt Date: 20190705
  Transmission Date: 20191004
  Serious: Yes (Hospitalization)
  Sender: FDA-Public Use
  Company Number: HU-ABBVIE-19K-076-2843562-00

PATIENT
  Age: 78 Year
  Sex: Female

DRUGS (7)
  1. PANANGIN FORTE [Concomitant]
     Indication: PROPHYLAXIS
     Dosage: 316 MG/280 MG, 1 TABLET AT A TIME
     Route: 048
     Dates: start: 201409
  2. VITAMIN B12 [Concomitant]
     Active Substance: CYANOCOBALAMIN
     Indication: PROPHYLAXIS
     Dosage: 1 TABLET AT A TIME
     Route: 048
  3. NOOTROPIL [Concomitant]
     Active Substance: PIRACETAM
     Indication: CEREBROVASCULAR ACCIDENT PROPHYLAXIS
     Dosage: 1 TABLET AT A TIME
     Route: 048
     Dates: start: 2010
  4. DUODOPA [Suspect]
     Active Substance: CARBIDOPA\LEVODOPA
     Indication: PARKINSON^S DISEASE
     Dosage: MORNING DOSE 0 ML; CD DURING DAY 3.2 ML/H; CD DURING NIGHT 2.9 ML/H; EXTRA DOSE 0.9 ML
     Route: 050
     Dates: start: 201410
  5. FOLIC ACID. [Concomitant]
     Active Substance: FOLIC ACID
     Indication: FOLATE DEFICIENCY
     Dosage: 1 TABLET AT A TIME
     Route: 048
     Dates: start: 20190625
  6. TENSIOMIN [Concomitant]
     Active Substance: CAPTOPRIL
     Indication: HYPERTENSION
     Dosage: 1-2 TABLETS AS REQUIRED
     Route: 048
     Dates: start: 2010
  7. DORETA [Concomitant]
     Active Substance: ACETAMINOPHEN\TRAMADOL HYDROCHLORIDE
     Indication: OSTEOARTHRITIS
     Dosage: 1 TABLET AT A TIME
     Route: 048

REACTIONS (4)
  - Hallucination [Not Recovered/Not Resolved]
  - Parkinson^s disease [Not Recovered/Not Resolved]
  - Immobile [Not Recovered/Not Resolved]
  - Persecutory delusion [Not Recovered/Not Resolved]

NARRATIVE: CASE EVENT DATE: 20190627
